FAERS Safety Report 8092826-0 (Version None)
Quarter: 2012Q1

REPORT INFORMATION
  Report Type: 
  Country: None (occurrence: None)
  Receive Date: 20120128
  Receipt Date: 20110725
  Transmission Date: 20120608
  Serious: No
  Sender: FDA-Public Use
  Company Number: US-ABBOTT-11P-163-0841758-00

PATIENT
  Sex: Female
  Weight: 130.75 kg

DRUGS (12)
  1. WELLBUTRIN [Concomitant]
     Indication: DEPRESSION
  2. LOSARTAN POTASSIUM [Concomitant]
     Indication: BLOOD PRESSURE
  3. DYAZIDE [Concomitant]
     Indication: BLOOD PRESSURE
  4. FOLIC ACID [Concomitant]
     Indication: RHEUMATOID ARTHRITIS
  5. METHOTREXATE [Concomitant]
     Indication: RHEUMATOID ARTHRITIS
  6. HUMIRA [Suspect]
     Route: 058
     Dates: start: 20110709
  7. METFORMIN HCL [Concomitant]
     Indication: DIABETES MELLITUS
  8. SALSALATE [Concomitant]
     Indication: RHEUMATOID ARTHRITIS
  9. HUMIRA [Suspect]
     Indication: RHEUMATOID ARTHRITIS
     Route: 050
     Dates: start: 20110617, end: 20110617
  10. CYMBALTA [Concomitant]
     Indication: DEPRESSION
  11. OMEPRAZOLE [Concomitant]
     Indication: GASTROOESOPHAGEAL REFLUX DISEASE
  12. VITAMIN D [Concomitant]
     Indication: SUPPLEMENTATION THERAPY

REACTIONS (2)
  - INJECTION SITE PAIN [None]
  - NAUSEA [None]
